FAERS Safety Report 5201379-3 (Version None)
Quarter: 2007Q1

REPORT INFORMATION
  Report Type: 
  Country: None (occurrence: None)
  Receive Date: 20070104
  Receipt Date: 20070102
  Transmission Date: 20070707
  Serious: Yes (Life-Threatening, Hospitalization)
  Sender: FDA-Public Use
  Company Number: AE070101.ACA

PATIENT
  Age: 68 Year
  Sex: Female

DRUGS (2)
  1. AMICAR [Suspect]
     Dosage: 1 GRAM PO TID 2 DOSES
     Route: 048
  2. OMACOR [Suspect]
     Indication: HYPERTRIGLYCERIDAEMIA
     Dosage: 1 G PO TID
     Route: 048

REACTIONS (7)
  - ANGINA UNSTABLE [None]
  - CHEST PAIN [None]
  - DRUG DISPENSING ERROR [None]
  - ELECTROCARDIOGRAM T WAVE INVERSION [None]
  - NAUSEA [None]
  - TROPONIN INCREASED [None]
  - WRONG DRUG ADMINISTERED [None]
